FAERS Safety Report 4471983-9 (Version None)
Quarter: 2004Q4

REPORT INFORMATION
  Report Type: 
  Country: None (occurrence: None)
  Receive Date: 20041007
  Receipt Date: 20040924
  Transmission Date: 20050328
  Serious: Yes (Other)
  Sender: FDA-Public Use
  Company Number: 2004071883

PATIENT
  Age: 41 Year
  Sex: Female

DRUGS (1)
  1. GLADEM       (SERTRALINE) [Suspect]
     Indication: MIGRAINE
     Dosage: 1 IN 1 D, ORAL
     Route: 048

REACTIONS (3)
  - ABDOMINAL PAIN UPPER [None]
  - APPENDICITIS [None]
  - PANCREATITIS [None]
